FAERS Safety Report 8460808-2 (Version None)
Quarter: 2012Q2

REPORT INFORMATION
  Report Type: 
  Country: None (occurrence: None)
  Receive Date: 20120624
  Receipt Date: 20120423
  Transmission Date: 20120825
  Serious: Yes (Death)
  Sender: FDA-Public Use
  Company Number: PHHY2008KR01131

PATIENT
  Sex: Female
  Weight: 65 kg

DRUGS (1)
  1. EXJADE [Suspect]
     Indication: IRON OVERLOAD
     Dosage: 10 MG/KG, UNK
     Route: 048
     Dates: start: 20070716, end: 20071227

REACTIONS (3)
  - ASTHENIA [None]
  - DECREASED APPETITE [None]
  - DEATH [None]
